FAERS Safety Report 9274909 (Version 7)
Quarter: 2013Q3

REPORT INFORMATION
  Report Type: Spontaneous
  Country: US (occurrence: US)
  Receive Date: 20130507
  Receipt Date: 20130722
  Transmission Date: 20140515
  Serious: Yes (Hospitalization)
  Sender: FDA-Public Use
  Company Number: US-JNJFOC-20130502268

PATIENT
  Age: 93 Year
  Sex: Male
  Weight: 65.32 kg

DRUGS (8)
  1. XARELTO [Suspect]
     Indication: CEREBROVASCULAR ACCIDENT PROPHYLAXIS
     Route: 048
     Dates: start: 20130315, end: 20130321
  2. XARELTO [Suspect]
     Indication: ATRIAL FIBRILLATION
     Route: 048
     Dates: start: 20130315, end: 20130321
  3. SIMVASTATIN [Concomitant]
     Route: 065
  4. LASIX [Concomitant]
     Route: 065
  5. LOMAX [Concomitant]
     Route: 065
  6. LISINOPRIL [Concomitant]
     Route: 065
  7. ATENOLOL [Concomitant]
     Route: 065
  8. CALCIUM [Concomitant]
     Route: 065

REACTIONS (2)
  - Gastrointestinal haemorrhage [Recovered/Resolved]
  - Haemoglobin decreased [Unknown]
